FAERS Safety Report 6652006-X (Version None)
Quarter: 2010Q1

REPORT INFORMATION
  Report Type: 
  Country: None (occurrence: None)
  Receive Date: 20100325
  Receipt Date: 20100325
  Transmission Date: 20100710
  Serious: Yes (Hospitalization)
  Sender: FDA-Public Use
  Company Number: PHHO2007BE06989

PATIENT
  Sex: Female
  Weight: 52.5 kg

DRUGS (14)
  1. ZOLEDRONIC ACID [Suspect]
     Indication: OSTEOPOROSIS POSTMENOPAUSAL
     Dosage: UNK
     Route: 042
     Dates: start: 20060530
  2. CALCIUM [Concomitant]
     Indication: OSTEOPOROSIS POSTMENOPAUSAL
  3. VITAMIN D [Concomitant]
     Indication: OSTEOPOROSIS POSTMENOPAUSAL
  4. OMEPRAZOLE [Concomitant]
     Indication: REFLUX OESOPHAGITIS
     Dosage: 20 MG, QD
     Route: 048
     Dates: start: 20030616
  5. ASAFLOW [Concomitant]
     Indication: PROPHYLAXIS
     Route: 048
     Dates: start: 20030701
  6. DAFALGAN [Concomitant]
     Indication: BACK PAIN
     Dosage: 500 MG, PRN
     Route: 048
     Dates: start: 20040501
  7. FELDENE [Concomitant]
     Indication: BACK PAIN
     Dosage: UNK, PRN
     Dates: start: 20040801
  8. LEVOTHYROXINE SODIUM [Concomitant]
     Indication: HYPOTHYROIDISM
     Dates: start: 20060205
  9. VOLTAREN [Concomitant]
     Indication: BACK PAIN
     Dosage: PRN
     Dates: start: 19970101
  10. LORAMET [Concomitant]
     Indication: INSOMNIA
     Dosage: 1 MG
     Dates: start: 20030201
  11. ZYRTEC [Concomitant]
  12. IBEXONE [Concomitant]
     Indication: VERTIGO
     Dosage: UNK, QD
     Dates: start: 19990101
  13. DUSPATALIN [Concomitant]
     Indication: IRRITABLE BOWEL SYNDROME
     Dosage: PRN
     Dates: start: 19980101
  14. SPASMOMEN [Concomitant]

REACTIONS (3)
  - ABDOMINAL PAIN [None]
  - COLON POLYPECTOMY [None]
  - POLYP COLORECTAL [None]
